FAERS Safety Report 13498583 (Version 1)
Quarter: 2017Q2

REPORT INFORMATION
  Report Type: Spontaneous
  Country: US (occurrence: US)
  Receive Date: 20170501
  Receipt Date: 20170501
  Transmission Date: 20170830
  Serious: No
  Sender: FDA-Public Use
  Company Number: US-PFIZER INC-2017189979

PATIENT
  Age: 74 Year
  Sex: Female
  Weight: 49.9 kg

DRUGS (3)
  1. HYDROCODONE [Concomitant]
     Active Substance: HYDROCODONE
     Indication: PAIN
     Dosage: 7.25 MG, 4X/DAY (ONCE EVERY 6 HOURS)
     Dates: start: 201701
  2. GABAPENTIN. [Suspect]
     Active Substance: GABAPENTIN
     Indication: BRACHIAL PLEXUS INJURY
     Dosage: 300 MG, 3X/DAY
     Route: 048
  3. GABAPENTIN. [Suspect]
     Active Substance: GABAPENTIN
     Indication: TENDON DISORDER
     Dosage: 100 MG, 1X/DAY (AT BEDTIME)
     Route: 048
     Dates: end: 201603

REACTIONS (2)
  - Pain [Recovered/Resolved]
  - Drug ineffective for unapproved indication [Unknown]

NARRATIVE: CASE EVENT DATE: 20161031
